FAERS Safety Report 5954304-1 (Version None)
Quarter: 2008Q4

REPORT INFORMATION
  Report Type: 
  Country: None (occurrence: None)
  Receive Date: 20081117
  Receipt Date: 20080317
  Transmission Date: 20090506
  Serious: No
  Sender: FDA-Public Use
  Company Number: US-AMGEN-KDL245754

PATIENT
  Sex: Female

DRUGS (6)
  1. ENBREL [Suspect]
     Indication: PSORIATIC ARTHROPATHY
     Route: 058
     Dates: start: 20070801, end: 20071001
  2. ENBREL [Suspect]
     Indication: PSORIASIS
  3. WELLBUTRIN [Concomitant]
  4. CONCERTA [Concomitant]
  5. ZYRTEC [Concomitant]
  6. UNSPECIFIED MEDICATION [Concomitant]

REACTIONS (1)
  - OEDEMA PERIPHERAL [None]
